FAERS Safety Report 6328205-3 (Version None)
Quarter: 2009Q3

REPORT INFORMATION
  Report Type: 
  Country: None (occurrence: None)
  Receive Date: 20090825
  Receipt Date: 20081229
  Transmission Date: 20100115
  Serious: No
  Sender: FDA-Public Use
  Company Number: US-ABBOTT-09P-163-0495487-00

PATIENT
  Sex: Female
  Weight: 82.628 kg

DRUGS (6)
  1. SYNTHROID [Suspect]
     Indication: HYPOTHYROIDISM
     Route: 048
     Dates: start: 20081120
  2. SYNTHROID [Suspect]
     Route: 048
     Dates: end: 20081120
  3. LORAZEPAM [Concomitant]
     Indication: NERVOUSNESS
     Route: 048
  4. LORAZEPAM [Concomitant]
     Indication: PAIN
  5. DARVOCET-N 100 [Concomitant]
     Indication: PAIN
     Dosage: DARVOCET-N 100, 4 IN 1 DAY AS NEEDED
     Route: 048
  6. DIOVAN [Concomitant]
     Indication: HYPERTENSION
     Route: 048

REACTIONS (2)
  - PAIN IN EXTREMITY [None]
  - WEIGHT INCREASED [None]
